FAERS Safety Report 10413561 (Version 2)
Quarter: 2014Q3

REPORT INFORMATION
  Report Type: Spontaneous
  Country: US (occurrence: US)
  Receive Date: 20140827
  Receipt Date: 20140829
  Transmission Date: 20150326
  Serious: Yes (Other)
  Sender: FDA-Public Use
  Company Number: US-BAUSCH-BL-2014-003875

PATIENT
  Age: 52 Year
  Sex: Female

DRUGS (1)
  1. LOTEMAX [Suspect]
     Active Substance: LOTEPREDNOL ETABONATE
     Indication: CATARACT OPERATION
     Route: 047
     Dates: start: 20140804, end: 20140811

REACTIONS (1)
  - Corneal dystrophy [Not Recovered/Not Resolved]

NARRATIVE: CASE EVENT DATE: 20140811
